FAERS Safety Report 8339812-0 (Version None)
Quarter: 2012Q2

REPORT INFORMATION
  Report Type: 
  Country: None (occurrence: None)
  Receive Date: 20120507
  Receipt Date: 20120504
  Transmission Date: 20120825
  Serious: Yes (Death, Other)
  Sender: FDA-Public Use
  Company Number: AU-B.I. PHARMACEUTICALS,INC./RIDGEFIELD-2012-AU-00814AU

PATIENT
  Sex: Male
  Weight: 93 kg

DRUGS (4)
  1. PRADAXA [Suspect]
     Indication: CEREBROVASCULAR ACCIDENT PROPHYLAXIS
     Dates: start: 20111008
  2. PROTON PUMP INHIBITOR [Concomitant]
  3. PRADAXA [Suspect]
     Indication: ATRIAL FIBRILLATION
  4. SERTRALINE HYDROCHLORIDE [Concomitant]

REACTIONS (4)
  - EMBOLISM [None]
  - DEATH [None]
  - INTESTINAL INFARCTION [None]
  - HAEMORRHAGE [None]
